FAERS Safety Report 15251020 (Version 2)
Quarter: 2018Q3

REPORT INFORMATION
  Report Type: Spontaneous
  Country: US (occurrence: US)
  Receive Date: 20180807
  Receipt Date: 20180905
  Transmission Date: 20181010
  Serious: Yes (Hospitalization)
  Sender: FDA-Public Use
  Company Number: US-TEVA-2018-US-937961

PATIENT
  Age: 60 Year
  Sex: Male

DRUGS (1)
  1. TESTOSTERONE CIPIONATE [Suspect]
     Active Substance: TESTOSTERONE
     Indication: PRIMARY HYPOGONADISM
     Route: 065

REACTIONS (9)
  - Hypotension [Unknown]
  - Agitation [Unknown]
  - Polycythaemia [Unknown]
  - Drug abuse [Unknown]
  - Pulmonary oedema [Unknown]
  - Acute respiratory failure [Unknown]
  - Respiratory failure [Unknown]
  - Cardiomyopathy [Unknown]
  - Cardiomegaly [Unknown]
